FAERS Safety Report 7331072-2 (Version None)
Quarter: 2011Q1

REPORT INFORMATION
  Report Type: 
  Country: None (occurrence: None)
  Receive Date: 20110228
  Receipt Date: 20110228
  Transmission Date: 20110831
  Serious: Yes (Life-Threatening, Hospitalization, Disabling, Other)
  Sender: FDA-Public Use
  Company Number: None

PATIENT
  Sex: Female
  Weight: 72.5755 kg

DRUGS (1)
  1. BACTRIM DS [Suspect]
     Indication: INFLUENZA
     Dosage: 2 A DAY
     Dates: start: 20090702, end: 20090712

REACTIONS (5)
  - STEVENS-JOHNSON SYNDROME [None]
  - SCAB [None]
  - APPARENT DEATH [None]
  - VOMITING [None]
  - PAIN [None]
